FAERS Safety Report 18928285 (Version 2)
Quarter: 2021Q1

REPORT INFORMATION
  Report Type: Spontaneous
  Country: CN (occurrence: CN)
  Receive Date: 20210223
  Receipt Date: 20210226
  Transmission Date: 20210420
  Serious: Yes (Other)
  Sender: FDA-Public Use
  Company Number: CN-PFIZER INC-2021171868

PATIENT
  Age: 50 Year
  Sex: Female

DRUGS (1)
  1. IBRANCE [Suspect]
     Active Substance: PALBOCICLIB
     Indication: BREAST CANCER FEMALE
     Dosage: 125 MG, CYCLIC (1X/DAY (QD), 21 DAYS FOR 8 CYCLE)
     Route: 048

REACTIONS (2)
  - Ascites [Not Recovered/Not Resolved]
  - Rash [Not Recovered/Not Resolved]
